FAERS Safety Report 5503953-3 (Version None)
Quarter: 2007Q4

REPORT INFORMATION
  Report Type: 
  Country: None (occurrence: None)
  Receive Date: 20071030
  Receipt Date: 20071030
  Transmission Date: 20080405
  Serious: Yes (Other)
  Sender: FDA-Public Use
  Company Number: None

PATIENT
  Age: 72 Year
  Sex: Female

DRUGS (1)
  1. SODIUM PHOSPHATE DIBASIC/SODIUM PHOSPHATE MONOBASIC (ANHYDRATE) [Suspect]
     Indication: COLONOSCOPY
     Dosage: PO
     Route: 048
     Dates: start: 20060701, end: 20060701

REACTIONS (5)
  - ANTINUCLEAR ANTIBODY POSITIVE [None]
  - BIOPSY KIDNEY ABNORMAL [None]
  - NEPHROPATHY [None]
  - PROTEINURIA [None]
  - RENAL FAILURE ACUTE [None]
